FAERS Safety Report 5654582-2 (Version None)
Quarter: 2008Q1

REPORT INFORMATION
  Report Type: 
  Country: None (occurrence: None)
  Receive Date: 20080307
  Receipt Date: 20080304
  Transmission Date: 20080703
  Serious: Yes (Hospitalization)
  Sender: FDA-Public Use
  Company Number: DE-BRISTOL-MYERS SQUIBB COMPANY-14059299

PATIENT
  Age: 57 Year
  Sex: Female
  Weight: 60 kg

DRUGS (7)
  1. CYCLOPHOSPHAMIDE [Suspect]
     Indication: BREAST CANCER
     Route: 042
     Dates: start: 20080123, end: 20080227
  2. PACLITAXEL [Suspect]
     Indication: BREAST CANCER
     Route: 042
     Dates: start: 20071205, end: 20080109
  3. EPIRUBICIN [Suspect]
     Indication: BREAST CANCER
     Dosage: ALSO GIVEN 150MG/M2 BETWEEN 24-OCT-2007 AND 21-NOV-2007.
     Route: 042
     Dates: start: 20071024, end: 20071121
  4. CIPRO [Concomitant]
     Route: 048
     Dates: start: 20080129, end: 20080204
  5. LACTULOSE [Concomitant]
     Route: 048
     Dates: start: 20080123
  6. EPOETIN BETA [Concomitant]
  7. NOVALGIN [Concomitant]
     Route: 048
     Dates: start: 20080206

REACTIONS (5)
  - CHILLS [None]
  - FEBRILE NEUTROPENIA [None]
  - LEUKOPENIA [None]
  - NEUTROPENIA [None]
  - PYREXIA [None]
